FAERS Safety Report 6761395-7 (Version None)
Quarter: 2010Q2

REPORT INFORMATION
  Report Type: 
  Country: None (occurrence: None)
  Receive Date: 20100608
  Receipt Date: 20100528
  Transmission Date: 20101027
  Serious: Yes (Other)
  Sender: FDA-Public Use
  Company Number: CH-AMGEN-QUU415962

PATIENT
  Age: 51 Year
  Sex: Male
  Weight: 85 kg

DRUGS (4)
  1. ENBREL [Suspect]
     Indication: RHEUMATOID ARTHRITIS
     Route: 058
     Dates: start: 20100330, end: 20100427
  2. METHOTREXATE [Suspect]
     Indication: RHEUMATOID ARTHRITIS
     Dates: start: 20100202
  3. DIOVAN HCT [Concomitant]
     Route: 048
  4. FOLIC ACID [Concomitant]
     Dosage: UNSPECIFIED
     Route: 048

REACTIONS (3)
  - CUTANEOUS LUPUS ERYTHEMATOSUS [None]
  - ROSACEA [None]
  - SYSTEMIC LUPUS ERYTHEMATOSUS RASH [None]
